FAERS Safety Report 12755534 (Version 2)
Quarter: 2016Q4

REPORT INFORMATION
  Report Type: Spontaneous
  Country: US (occurrence: US)
  Receive Date: 20160916
  Receipt Date: 20161118
  Transmission Date: 20170207
  Serious: Yes (Hospitalization, Other)
  Sender: FDA-Public Use
  Company Number: US-JNJFOC-20160913724

PATIENT
  Age: 50 Year
  Sex: Female

DRUGS (1)
  1. XARELTO [Suspect]
     Active Substance: RIVAROXABAN
     Indication: PRODUCT USED FOR UNKNOWN INDICATION
     Route: 048
     Dates: start: 2013, end: 2014

REACTIONS (3)
  - Internal haemorrhage [Unknown]
  - Haematemesis [Unknown]
  - Wound haemorrhage [Recovering/Resolving]

NARRATIVE: CASE EVENT DATE: 201402
